FAERS Safety Report 13789220 (Version 1)
Quarter: 2017Q3

REPORT INFORMATION
  Report Type: Spontaneous
  Country: US (occurrence: US)
  Receive Date: 20170725
  Receipt Date: 20170725
  Transmission Date: 20171127
  Serious: No
  Sender: FDA-Public Use
  Company Number: US-UNITED THERAPEUTICS-UNT-2017-002310

PATIENT
  Age: 60 Year
  Sex: Female
  Weight: 64.85 kg

DRUGS (2)
  1. WARFARIN [Concomitant]
     Active Substance: WARFARIN
     Indication: PRODUCT USED FOR UNKNOWN INDICATION
  2. REMODULIN [Suspect]
     Active Substance: TREPROSTINIL
     Indication: PULMONARY HYPERTENSION
     Dosage: 0.020 ?G/KG, CONTINUING
     Route: 041
     Dates: start: 20161227

REACTIONS (4)
  - Injection site haemorrhage [Unknown]
  - Injection site irritation [Unknown]
  - Device dislocation [Unknown]
  - Injection site rash [Unknown]

NARRATIVE: CASE EVENT DATE: 201702
